FAERS Safety Report 9555972 (Version 1)
Quarter: 2013Q3

REPORT INFORMATION
  Report Type: Spontaneous
  Country: US (occurrence: None)
  Receive Date: 20130828
  Receipt Date: 20130828
  Transmission Date: 20140515
  Serious: Yes (Other)
  Sender: FDA-Public Use
  Company Number: 1717204

PATIENT
  Age: 45 Year
  Sex: Female

DRUGS (2)
  1. DOCETAXEL [Suspect]
     Indication: CHEMOTHERAPY
     Dosage: NOT REPORTED , NOT REPORTED (UNKNOWN)
  2. CARBOPLATIN [Suspect]
     Indication: CHEMOTHERAPY

REACTIONS (1)
  - Febrile neutropenia [None]
